FAERS Safety Report 17264129 (Version 1)
Quarter: 2020Q1

REPORT INFORMATION
  Report Type: Other
  Country: CA (occurrence: CA)
  Receive Date: 20200113
  Receipt Date: 20200113
  Transmission Date: 20200409
  Serious: Yes (Hospitalization, Disabling, Other)
  Sender: FDA-Public Use
  Company Number: CA-COVIS PHARMA B.V.-2020COV00016

PATIENT
  Age: 59 Year
  Sex: Female

DRUGS (5)
  1. GLYCOPYRRONIUM BROMIDE [Suspect]
     Active Substance: GLYCOPYRRONIUM
  2. SALBUTAMOL SULFATE [Suspect]
     Active Substance: ALBUTEROL SULFATE
  3. ADVAIR HFA [Suspect]
     Active Substance: FLUTICASONE PROPIONATE\SALMETEROL XINAFOATE
  4. PREDNISONE. [Suspect]
     Active Substance: PREDNISONE
  5. ALVESCO [Suspect]
     Active Substance: CICLESONIDE
     Route: 055

REACTIONS (9)
  - Colitis microscopic [Unknown]
  - Addison^s disease [Unknown]
  - Arrhythmia [Unknown]
  - Gastrooesophageal reflux disease [Unknown]
  - Interstitial lung disease [Unknown]
  - Chronic kidney disease [Unknown]
  - Eosinophilic pneumonia chronic [Unknown]
  - Malaise [Unknown]
  - Asthma [Unknown]
